FAERS Safety Report 8123646-6 (Version None)
Quarter: 2012Q1

REPORT INFORMATION
  Report Type: 
  Country: None (occurrence: None)
  Receive Date: 20120208
  Receipt Date: 20120206
  Transmission Date: 20120608
  Serious: Yes (Death, Hospitalization, Other)
  Sender: FDA-Public Use
  Company Number: PHEH2007US11452

PATIENT
  Sex: Male

DRUGS (60)
  1. MELPHALAN HYDROCHLORIDE [Concomitant]
  2. AUGMENTIN '125' [Concomitant]
  3. METOCLOPRAMIDE HCL [Concomitant]
  4. NORVASC [Concomitant]
     Dosage: 10 MG, UNK
  5. CHLORHEXIDINE GLUCONATE [Concomitant]
  6. CIPROFLOXACIN [Concomitant]
  7. VITAMIN B-12 [Concomitant]
  8. METOPROLOL [Concomitant]
     Dosage: 12.5 MG, DAILY
     Route: 048
     Dates: start: 20060605
  9. SENOKOT [Concomitant]
     Dates: start: 20050716
  10. PRINIVIL [Concomitant]
     Dosage: 20 MG, UNK
  11. CARDURA [Concomitant]
     Dosage: 8 MG HS
  12. PROBENECID [Concomitant]
     Dosage: 500 MG, QD
     Dates: end: 19990729
  13. LASIX [Concomitant]
     Dosage: 20 MG, QD
  14. AXID [Concomitant]
     Dosage: 150 MG, BID
  15. PROSCAR [Concomitant]
     Dosage: 5 MG, QD
  16. OMEPRAZOLE [Concomitant]
  17. CALCIUM [Concomitant]
  18. VITAMIN B6 [Concomitant]
  19. PROMETHAZINE [Concomitant]
     Route: 042
  20. KEFLEX [Concomitant]
  21. NEURONTIN [Concomitant]
     Dosage: 400 MG, UNK
  22. CLINDAMYCIN [Concomitant]
     Dosage: 150 MG, UNK
  23. ALKERAN [Concomitant]
     Dosage: 2 MG, UNK
  24. ATENOLOL [Concomitant]
     Dosage: UNK
  25. VITAMIN B1 TAB [Concomitant]
  26. COLCHICINE [Concomitant]
  27. RENAGEL [Concomitant]
  28. EPOGEN [Concomitant]
     Dosage: UNK
     Dates: start: 20060522
  29. ALBUTEROL [Concomitant]
  30. CIPRO [Concomitant]
     Dosage: 250 MG, UNK
  31. DEXAMETHASONE [Concomitant]
  32. SEVELAMER [Concomitant]
  33. SIMVASTATIN [Concomitant]
  34. TERAZOSIN HCL [Concomitant]
  35. FLOMAX [Concomitant]
     Dates: start: 20060731
  36. FOLIC ACID [Concomitant]
     Dosage: 400 UG, DAILY
     Route: 048
     Dates: start: 20050719
  37. PREDNISONE [Concomitant]
  38. HYDROCODONE [Concomitant]
  39. PENICILLIN ^GRUNENTHAL^ [Concomitant]
     Dosage: 500 MG, UNK
  40. VELCADE [Concomitant]
  41. FOSAMAX [Concomitant]
  42. PROCRIT                            /00909301/ [Concomitant]
  43. REGLAN [Concomitant]
  44. THALIDOMIDE [Concomitant]
  45. GABAPENTIN [Concomitant]
     Dosage: 100 MG, UNK
  46. MINOXIDIL [Concomitant]
     Dosage: 10 MG, UNK
  47. PREDNISOLONE [Concomitant]
  48. ATROVENT [Concomitant]
  49. LIPITOR [Concomitant]
     Dosage: 10 MG, QD
  50. LEVOTHYROXINE SODIUM [Concomitant]
  51. GATIFLOXACIN [Concomitant]
  52. LOVAZA [Concomitant]
  53. AREDIA [Suspect]
  54. COZAAR [Concomitant]
     Dosage: 50 MG, UNK
  55. NAPROSYN [Concomitant]
     Dosage: 500 MG, QD
     Dates: end: 19990729
  56. ALLOPURINOL [Concomitant]
     Dosage: 100 MG, QD
     Route: 048
  57. FUROSEMIDE [Concomitant]
  58. PENICILLIN VK [Concomitant]
  59. HEPARIN [Concomitant]
  60. ZOCOR [Concomitant]
     Route: 048
     Dates: start: 20060605

REACTIONS (83)
  - BONE PAIN [None]
  - DEVICE RELATED INFECTION [None]
  - LEUKOPENIA [None]
  - DEPRESSED LEVEL OF CONSCIOUSNESS [None]
  - PULMONARY OEDEMA [None]
  - PULMONARY FIBROSIS [None]
  - FATIGUE [None]
  - HEADACHE [None]
  - HYPOGLYCAEMIA [None]
  - IRON DEFICIENCY ANAEMIA [None]
  - TUMOUR NECROSIS [None]
  - ANXIETY [None]
  - DISABILITY [None]
  - HYPERKALAEMIA [None]
  - GASTROOESOPHAGEAL REFLUX DISEASE [None]
  - LETHARGY [None]
  - MALAISE [None]
  - HYPOTENSION [None]
  - SQUAMOUS CELL CARCINOMA [None]
  - LUNG INFILTRATION [None]
  - GASTRITIS [None]
  - PLEURAL EFFUSION [None]
  - NAUSEA [None]
  - RESPIRATORY ACIDOSIS [None]
  - PNEUMONIA [None]
  - HYPERCHOLESTEROLAEMIA [None]
  - HYPOVOLAEMIA [None]
  - PRURITUS [None]
  - DYSPNOEA [None]
  - SEPSIS [None]
  - CONVULSION [None]
  - NEOPLASM [None]
  - CHRONIC OBSTRUCTIVE PULMONARY DISEASE [None]
  - CARDIAC FAILURE CONGESTIVE [None]
  - RENAL FAILURE CHRONIC [None]
  - BUNDLE BRANCH BLOCK RIGHT [None]
  - TOOTH INFECTION [None]
  - PNEUMONIA ASPIRATION [None]
  - HYPOXIA [None]
  - HYPOACUSIS [None]
  - NEPHROPATHY [None]
  - DIARRHOEA [None]
  - CHEST PAIN [None]
  - ESSENTIAL HYPERTENSION [None]
  - DEATH [None]
  - ANHEDONIA [None]
  - ATRIAL FIBRILLATION [None]
  - DYSPHAGIA [None]
  - DEMENTIA [None]
  - RESPIRATORY DISTRESS [None]
  - MITRAL VALVE INCOMPETENCE [None]
  - TRICUSPID VALVE INCOMPETENCE [None]
  - ANAPHYLACTIC SHOCK [None]
  - PANCYTOPENIA [None]
  - PAIN [None]
  - INJURY [None]
  - ARTERIOVENOUS FISTULA [None]
  - ARTERIOSCLEROSIS [None]
  - DEPRESSION [None]
  - HYPOPHOSPHATAEMIA [None]
  - HYPERGLYCAEMIA [None]
  - CONTUSION [None]
  - EPISTAXIS [None]
  - CONSTIPATION [None]
  - COAGULOPATHY [None]
  - NEUROPATHY PERIPHERAL [None]
  - DIZZINESS [None]
  - ABSCESS [None]
  - RASH [None]
  - RENAL OSTEODYSTROPHY [None]
  - OSTEONECROSIS OF JAW [None]
  - SWELLING [None]
  - ULCER [None]
  - CARDIOMEGALY [None]
  - THROMBOCYTOPENIA [None]
  - GYNAECOMASTIA [None]
  - CERVICAL VERTEBRAL FRACTURE [None]
  - NECK PAIN [None]
  - SUBMANDIBULAR MASS [None]
  - ATELECTASIS [None]
  - HYPERPARATHYROIDISM SECONDARY [None]
  - RESTLESS LEGS SYNDROME [None]
  - PYREXIA [None]
